FAERS Safety Report 21371069 (Version 3)
Quarter: 2022Q4

REPORT INFORMATION
  Report Type: Spontaneous
  Country: US (occurrence: US)
  Receive Date: 20220923
  Receipt Date: 20221007
  Transmission Date: 20230112
  Serious: No
  Sender: FDA-Public Use
  Company Number: US-LUPIN PHARMACEUTICALS INC.-2022-11265

PATIENT
  Sex: Female

DRUGS (1)
  1. ALBUTEROL SULFATE [Suspect]
     Active Substance: ALBUTEROL SULFATE
     Indication: Bronchitis viral
     Dosage: UNK, PRN (1-2 PUFF EVERY 6 HOURS)
     Dates: start: 202208

REACTIONS (2)
  - Wrong technique in product usage process [Unknown]
  - Off label use [Unknown]
